FAERS Safety Report 5509054-2 (Version None)
Quarter: 2007Q4

REPORT INFORMATION
  Report Type: 
  Country: None (occurrence: None)
  Receive Date: 20071031
  Receipt Date: 20070720
  Transmission Date: 20080405
  Serious: Yes (Hospitalization)
  Sender: FDA-Public Use
  Company Number: 200616124BWH

PATIENT
  Age: 53 Year
  Sex: Male

DRUGS (7)
  1. NEXAVAR [Suspect]
     Indication: METASTASES TO BONE
     Dosage: 400 MG, BID, ORAL
     Route: 048
     Dates: start: 20060712, end: 20061001
  2. NEXAVAR [Suspect]
     Indication: RENAL CELL CARCINOMA STAGE UNSPECIFIED
     Dosage: 400 MG, BID, ORAL
     Route: 048
     Dates: start: 20060712, end: 20061001
  3. PERCOCET [Concomitant]
  4. ZETIA [Concomitant]
  5. CELEBREX [Concomitant]
  6. TESTOSTERONE [Concomitant]
  7. OSCAL (CALCIUM CARBONATE) [Concomitant]

REACTIONS (8)
  - BURNING SENSATION [None]
  - DRUG TOXICITY [None]
  - ERYTHEMA [None]
  - FATIGUE [None]
  - LOCALISED INFECTION [None]
  - OEDEMA PERIPHERAL [None]
  - PYREXIA [None]
  - RASH [None]
